FAERS Safety Report 14697506 (Version 1)
Quarter: 2018Q1

REPORT INFORMATION
  Report Type: Spontaneous
  Country: US (occurrence: US)
  Receive Date: 20180330
  Receipt Date: 20180330
  Transmission Date: 20180509
  Serious: No
  Sender: FDA-Public Use
  Company Number: US-SA-2017SA189296

PATIENT
  Age: 23 Year
  Sex: Male
  Weight: 58.97 kg

DRUGS (1)
  1. ALLEGRA ALLERGY [Suspect]
     Active Substance: FEXOFENADINE HYDROCHLORIDE
     Indication: HYPERSENSITIVITY
     Dosage: DOSE: 1 DF ON DAY 1 AND 2 DF ON DAY 2
     Route: 048
     Dates: start: 20170924, end: 20170926

REACTIONS (1)
  - Drug ineffective [Unknown]
